FAERS Safety Report 9478961 (Version 1)
Quarter: 2013Q3

REPORT INFORMATION
  Report Type: Spontaneous
  Country: US (occurrence: US)
  Receive Date: 20130827
  Receipt Date: 20130827
  Transmission Date: 20140515
  Serious: No
  Sender: FDA-Public Use
  Company Number: US-TEVA-427697USA

PATIENT
  Age: 43 Year
  Sex: Female

DRUGS (1)
  1. COPAXONE [Suspect]

REACTIONS (4)
  - Flushing [Unknown]
  - Erythema [Unknown]
  - Palpitations [Unknown]
  - Dizziness [Unknown]
